FAERS Safety Report 6518626-8 (Version None)
Quarter: 2009Q4

REPORT INFORMATION
  Report Type: 
  Country: None (occurrence: None)
  Receive Date: 20091228
  Receipt Date: 20091217
  Transmission Date: 20100525
  Serious: Yes (Death, Other)
  Sender: FDA-Public Use
  Company Number: US-ROCHE-498823

PATIENT
  Sex: Female
  Weight: 68 kg

DRUGS (3)
  1. BONIVA [Suspect]
     Indication: OSTEOPOROSIS
     Dosage: REPORTED AS DAILY, FREQUENCY: PRETTY REGULAR; OTHER INDICATION: REPAIR BONE LOSS
     Route: 048
     Dates: start: 20060101, end: 20080501
  2. BONIVA [Suspect]
     Route: 048
  3. MULTIPLE UNSPECIFIED MEDICATIONS [Concomitant]

REACTIONS (2)
  - GASTROOESOPHAGEAL CANCER [None]
  - PANCREATIC CARCINOMA [None]
